FAERS Safety Report 7738848-8 (Version None)
Quarter: 2011Q3

REPORT INFORMATION
  Report Type: 
  Country: None (occurrence: None)
  Receive Date: 20110909
  Receipt Date: 20110831
  Transmission Date: 20111222
  Serious: Yes (Hospitalization)
  Sender: FDA-Public Use
  Company Number: US-BIOGENIDEC-2011BI030587

PATIENT
  Age: 52 Year
  Sex: Female

DRUGS (8)
  1. AMPYRA [Concomitant]
     Route: 048
  2. CALCIUM WITH VITAMIN D [Concomitant]
     Indication: MULTIPLE SCLEROSIS
     Route: 048
  3. LEXAPRO [Concomitant]
     Indication: DEPRESSION
     Route: 048
  4. CALCIUM WITH VITAMIN D [Concomitant]
     Indication: GAIT DISTURBANCE
     Route: 048
  5. CALCIUM WITH VITAMIN D [Concomitant]
     Indication: NEUROGENIC BLADDER
     Route: 048
  6. TYSABRI [Suspect]
     Indication: MULTIPLE SCLEROSIS
     Route: 042
     Dates: start: 20081016
  7. BACLOFEN [Concomitant]
     Indication: MULTIPLE SCLEROSIS
     Route: 048
  8. OXYBUTYNIN [Concomitant]
     Route: 048

REACTIONS (2)
  - FATIGUE [None]
  - CYTOMEGALOVIRUS HEPATITIS [None]
